FAERS Safety Report 9023164 (Version 1)
Quarter: 2013Q1

REPORT INFORMATION
  Report Type: Spontaneous
  Country: US (occurrence: US)
  Receive Date: 20130120
  Receipt Date: 20130120
  Transmission Date: 20140127
  Serious: No
  Sender: FDA-Public Use
  Company Number: US-ALLERGAN-1214744US

PATIENT
  Age: 61 Year
  Sex: Female

DRUGS (6)
  1. BOTOX COSMETIC [Suspect]
     Indication: SKIN WRINKLING
     Dosage: 20 UNITS, SINGLE
     Route: 030
     Dates: start: 20120925, end: 20120925
  2. BOTOX COSMETIC [Suspect]
     Indication: SKIN WRINKLING
     Dosage: 10 UNITS, SINGLE
     Route: 030
     Dates: start: 20120925, end: 20120925
  3. BOTOX COSMETIC [Suspect]
     Indication: SKIN WRINKLING
     Dosage: 7.5 UNITS, SINGLE
     Route: 030
     Dates: start: 20120925, end: 20120925
  4. BOTOX COSMETIC [Suspect]
     Indication: SKIN WRINKLING
     Dosage: 20 UNITS, SINGLE
     Route: 030
     Dates: start: 20120925, end: 20120925
  5. BOTOX COSMETIC [Suspect]
     Dosage: UNK, SINGLE
     Route: 030
     Dates: start: 20120306, end: 20120306
  6. SYNTHROID [Concomitant]
     Indication: PRODUCT USED FOR UNKNOWN INDICATION
     Dosage: UNK
     Route: 048

REACTIONS (15)
  - Off label use [Unknown]
  - Vision blurred [Unknown]
  - Vertigo [Unknown]
  - Fatigue [Unknown]
  - Muscular weakness [Unknown]
  - Nausea [Unknown]
  - Coordination abnormal [Unknown]
  - Coordination abnormal [Unknown]
  - Eye movement disorder [Unknown]
  - Muscular weakness [Unknown]
  - Dysgeusia [Unknown]
  - Muscle tightness [Unknown]
  - Tension headache [Unknown]
  - Dysphonia [Unknown]
  - Influenza like illness [Unknown]
